FAERS Safety Report 14895636 (Version 4)
Quarter: 2019Q1

REPORT INFORMATION
  Report Type: Report from Study
  Country: US (occurrence: US)
  Receive Date: 20180515
  Receipt Date: 20190220
  Transmission Date: 20190417
  Serious: Yes (Hospitalization)
  Sender: FDA-Public Use
  Company Number: US-ASTRAZENECA-2018SE52830

PATIENT
  Age: 24733 Day
  Sex: Male
  Weight: 56.6 kg

DRUGS (15)
  1. MEDI4736 [Suspect]
     Active Substance: DURVALUMAB
     Indication: MESOTHELIOMA
     Route: 042
     Dates: start: 20180131
  2. CARBOPLATIN. [Suspect]
     Active Substance: CARBOPLATIN
     Indication: MESOTHELIOMA
     Dosage: 750 MG
     Route: 042
     Dates: start: 20180131
  3. PEMETREXED. [Suspect]
     Active Substance: PEMETREXED
     Indication: MESOTHELIOMA
     Dosage: 500 MG/M2
     Route: 042
     Dates: start: 20180131
  4. DECADRON [Concomitant]
     Active Substance: DEXAMETHASONE
     Dosage: 4 MG
     Route: 048
     Dates: start: 20180410
  5. ROBINUL [Concomitant]
     Active Substance: GLYCOPYRROLATE
     Dosage: 1 MG EVERY NIGHT AT BEDTIME
     Route: 048
     Dates: start: 20180221
  6. IPRATROPIUM BROMIDE. [Concomitant]
     Active Substance: IPRATROPIUM BROMIDE
     Route: 045
  7. PRINIVIL [Concomitant]
     Active Substance: LISINOPRIL
     Dosage: 20 MG
     Route: 048
     Dates: start: 20180129
  8. ZYPREXA [Concomitant]
     Active Substance: OLANZAPINE
     Route: 048
     Dates: start: 20180314
  9. GLUCOPHAGE [Concomitant]
     Active Substance: METFORMIN HYDROCHLORIDE
     Route: 048
     Dates: start: 20170703
  10. ASPIRIN. [Concomitant]
     Active Substance: ASPIRIN
  11. PRILOSEC [Concomitant]
     Active Substance: OMEPRAZOLE MAGNESIUM
     Route: 048
     Dates: start: 20170714
  12. ZOFRAN [Concomitant]
     Active Substance: ONDANSETRON HYDROCHLORIDE
     Indication: VOMITING
     Route: 048
     Dates: start: 20180410
  13. ZEBETA [Concomitant]
     Active Substance: BISOPROLOL FUMARATE
     Dosage: 5 MG
     Route: 048
     Dates: start: 20180129
  14. ZOFRAN [Concomitant]
     Active Substance: ONDANSETRON HYDROCHLORIDE
     Indication: NAUSEA
     Route: 048
     Dates: start: 20180410
  15. MULTIVITAMIN WITH MINERALS [Concomitant]
     Active Substance: MINERALS\VITAMINS
     Route: 048
     Dates: start: 20180117

REACTIONS (3)
  - Platelet count decreased [Recovered/Resolved]
  - White blood cell count decreased [Recovered/Resolved]
  - Anaemia [Recovered/Resolved]

NARRATIVE: CASE EVENT DATE: 20180416
